FAERS Safety Report 5275922-2 (Version None)
Quarter: 2007Q1

REPORT INFORMATION
  Report Type: 
  Country: None (occurrence: None)
  Receive Date: 20061213
  Receipt Date: 20060510
  Transmission Date: 20070707
  Serious: No
  Sender: FDA-Public Use
  Company Number: 2006UW09290

PATIENT
  Age: 54 Year
  Sex: Male

DRUGS (6)
  1. SEROQUEL [Suspect]
     Indication: MANIA
     Dosage: 75 MG DAILY;PO
     Route: 048
     Dates: end: 20051101
  2. SEROQUEL [Suspect]
     Indication: POST-TRAUMATIC STRESS DISORDER
     Dosage: 75 MG DAILY;PO
     Route: 048
     Dates: end: 20051101
  3. SEROQUEL [Suspect]
     Indication: MANIA
     Dosage: 200 MG, DAILY; PO
     Route: 048
     Dates: start: 20060401
  4. SEROQUEL [Suspect]
     Indication: POST-TRAUMATIC STRESS DISORDER
     Dosage: 200 MG, DAILY; PO
     Route: 048
     Dates: start: 20060401
  5. SEROQUEL [Suspect]
     Indication: MANIA
     Dosage: 425 MG DAILY; PO
     Route: 048
  6. SEROQUEL [Suspect]
     Indication: POST-TRAUMATIC STRESS DISORDER
     Dosage: 425 MG DAILY; PO
     Route: 048

REACTIONS (2)
  - DYSKINESIA [None]
  - TARDIVE DYSKINESIA [None]
